FAERS Safety Report 5027635-X (Version None)
Quarter: 2006Q2

REPORT INFORMATION
  Report Type: 
  Country: None (occurrence: None)
  Receive Date: 20060428
  Receipt Date: 20060116
  Transmission Date: 20061013
  Serious: No
  Sender: FDA-Public Use
  Company Number: COT_0383_2006

PATIENT
  Age: 58 Year
  Sex: Female
  Weight: 68.2 kg

DRUGS (13)
  1. VENTAVIS [Suspect]
     Indication: PULMONARY HYPERTENSION
     Dosage: 2.5 MCG 6XD IH
     Dates: start: 20050401
  2. HUMULIN N [Concomitant]
  3. REGULAR INSULIN [Concomitant]
  4. BUMEX [Concomitant]
  5. LORTAB [Concomitant]
  6. DOCUSATE SODIUM [Concomitant]
  7. OXYCODONE HCL [Concomitant]
  8. POTASSIUM CHLORIDE [Concomitant]
  9. ALLOPURINOL [Concomitant]
  10. LANOXIN [Concomitant]
  11. MULTIVITAMIN [Concomitant]
  12. PREDNISONE [Concomitant]
  13. SILDENAFIL [Concomitant]

REACTIONS (3)
  - OXYGEN SATURATION DECREASED [None]
  - PHARYNGOLARYNGEAL PAIN [None]
  - SLEEP WALKING [None]
